FAERS Safety Report 9322266 (Version 7)
Quarter: 2014Q1

REPORT INFORMATION
  Report Type: Report from Study
  Country: FR (occurrence: FR)
  Receive Date: 20130531
  Receipt Date: 20140218
  Transmission Date: 20141002
  Serious: Yes (Hospitalization)
  Sender: FDA-Public Use
  Company Number: FR-ROCHE-1228019

PATIENT
  Age: 29 Year
  Sex: Male
  Weight: 74 kg

DRUGS (21)
  1. VISMODEGIB [Suspect]
     Indication: BASAL CELL CARCINOMA
     Dosage: DATE OF LAST DOSE PRIOR TO SAE: 19/MAY/2013
     Route: 048
     Dates: start: 20110727, end: 20130519
  2. VISMODEGIB [Suspect]
     Route: 048
     Dates: start: 20130522
  3. TARDYFERON (FRANCE) [Concomitant]
     Indication: ANAEMIA
     Route: 065
     Dates: start: 20110825, end: 20111117
  4. TARDYFERON (FRANCE) [Concomitant]
     Dosage: (B9) 1 TAB
     Route: 065
     Dates: start: 20130726
  5. ERYFLUID [Concomitant]
     Indication: FOLLICULITIS
     Dosage: 1 APPLICATION
     Route: 065
     Dates: start: 20111021, end: 20111117
  6. TOBRADEX [Concomitant]
     Indication: KERATITIS
     Route: 065
     Dates: start: 20110721, end: 20120824
  7. VITAMIN A [Concomitant]
     Indication: KERATITIS
     Route: 065
     Dates: start: 20100706, end: 20110825
  8. VITAMIN A [Concomitant]
     Route: 065
     Dates: start: 20120113, end: 20120921
  9. INDOCOLLYRE [Concomitant]
     Indication: KERATITIS
     Route: 065
     Dates: start: 20110721, end: 20110825
  10. TOBREX [Concomitant]
     Indication: KERATITIS
     Route: 065
     Dates: start: 20110825, end: 20120921
  11. BORIC ACID/SODIUM BORATE/SODIUM CHLORIDE [Concomitant]
     Indication: KERATITIS
     Route: 065
     Dates: start: 20110825, end: 20120921
  12. ARTELAC [Concomitant]
     Indication: KERATITIS
     Dosage: 3 DROPS DAILY
     Route: 065
     Dates: start: 20120116, end: 20120209
  13. FLU INJECTION [Concomitant]
     Indication: PROPHYLAXIS
     Route: 065
     Dates: start: 20111215, end: 20111215
  14. OLIGOSOL PHOSPHORE [Concomitant]
     Indication: HYPOPHOSPHATAEMIA
     Route: 065
     Dates: start: 20120921, end: 20120929
  15. OLIGOSOL PHOSPHORE [Concomitant]
     Route: 065
     Dates: start: 20121019, end: 20121102
  16. VITABACT [Concomitant]
     Indication: BASAL CELL NAEVUS SYNDROME
     Dosage: 1 DROP
     Route: 065
     Dates: start: 20120921
  17. VAXIGRIP [Concomitant]
     Indication: PROPHYLAXIS
     Route: 065
     Dates: start: 20121204, end: 20121204
  18. DOLIPRANE [Concomitant]
     Indication: FEMUR FRACTURE
     Route: 065
     Dates: start: 20130520, end: 20130522
  19. INEXIUM [Concomitant]
     Indication: FEMUR FRACTURE
     Route: 065
     Dates: start: 20130520, end: 20130627
  20. LOVENOX [Concomitant]
     Indication: FEMUR FRACTURE
     Route: 065
     Dates: start: 20130520, end: 20130627
  21. DAFALGAN [Concomitant]
     Route: 065
     Dates: start: 20130523

REACTIONS (1)
  - Femur fracture [Recovered/Resolved]
